FAERS Safety Report 7568566-0 (Version None)
Quarter: 2011Q2

REPORT INFORMATION
  Report Type: 
  Country: None (occurrence: None)
  Receive Date: 20110623
  Receipt Date: 20110610
  Transmission Date: 20111010
  Serious: Yes (Hospitalization)
  Sender: FDA-Public Use
  Company Number: CA-JNJFOC-20110605833

PATIENT
  Sex: Male
  Weight: 103 kg

DRUGS (11)
  1. REMICADE [Suspect]
     Indication: CROHN'S DISEASE
     Dosage: 18 INFUSIONS ON UNSPECIFIED DATES
     Route: 042
  2. REMICADE [Suspect]
     Dosage: THIS IS THE PATIENT'S 20TH INFUSION
     Route: 042
     Dates: start: 20110610
  3. ALL OTHER THERAPEUTIC PRODUCT [Concomitant]
     Route: 048
  4. INSULIN [Concomitant]
  5. LEVEMIR [Concomitant]
  6. INSULIN [Concomitant]
  7. PERCOCET [Concomitant]
     Indication: PAIN
  8. REMICADE [Suspect]
     Route: 042
     Dates: start: 20110414
  9. CRESTOR [Concomitant]
     Route: 048
  10. ALTACE [Concomitant]
     Dosage: DOSE IS 10/25 MG DAILY
     Route: 048
  11. NORVASC [Concomitant]
     Route: 048

REACTIONS (2)
  - POST PROCEDURAL INFECTION [None]
  - KNEE ARTHROPLASTY [None]
